FAERS Safety Report 9701853 (Version 2)
Quarter: 2014Q1

REPORT INFORMATION
  Report Type: Spontaneous
  Country: BR (occurrence: BR)
  Receive Date: 20131121
  Receipt Date: 20140130
  Transmission Date: 20141002
  Serious: Yes (Other)
  Sender: FDA-Public Use
  Company Number: PHHY2013BR133545

PATIENT
  Age: 82 Year
  Sex: Female

DRUGS (5)
  1. DIOVAN HCT [Suspect]
     Indication: HYPERTENSION
     Dosage: 1 DF (160MG VALS/25 MG HCT), BID (IN THE MORNING AND AT NIGHT)
     Route: 048
     Dates: start: 2011
  2. VALIUM [Concomitant]
     Indication: INSOMNIA
     Dosage: 10 MG, UNK
     Route: 048
  3. SELOZOK [Concomitant]
     Indication: HYPERTENSION
     Dosage: 1 DF (25 MG), BID (IN THE MORNING AND AT NIGHT)
     Route: 048
  4. FLORATIL [Concomitant]
     Indication: DIVERTICULITIS
     Dosage: 1 DF (100MG), DAILY
     Route: 048
  5. DIMETHICONE [Concomitant]
     Indication: DIVERTICULITIS
     Dosage: 1 DF (75MG), DAILY
     Route: 048

REACTIONS (1)
  - Breast cancer [Recovering/Resolving]
